FAERS Safety Report 4653606-9 (Version None)
Quarter: 2005Q2

REPORT INFORMATION
  Report Type: 
  Country: None (occurrence: None)
  Receive Date: 20050505
  Receipt Date: 20041116
  Transmission Date: 20051028
  Serious: Yes (Hospitalization)
  Sender: FDA-Public Use
  Company Number: NL-ROCHE-386289

PATIENT
  Age: 72 Year
  Sex: Male
  Weight: 86.5 kg

DRUGS (8)
  1. INTERFERON ALFA-2A [Suspect]
     Dosage: 6 MILLIONU/M2 ONCE A WEEK ON WEEK ONE+ FOUR AND THRICE WEEKLY ON WEEK 2 + 3.  CUMULATIVE DO+
     Route: 058
     Dates: start: 20041018, end: 20041115
  2. INTERFERON ALFA-2A [Suspect]
     Dosage: 6 MILLIONU/M2 ONCE A WEEK ON WEEK ONE+ FOUR AND THRICE WEEKLY ON WEEK 2 + 3.  CUMULATIVE DO+
     Route: 058
     Dates: start: 20041117, end: 20050105
  3. PROLEUKIN [Suspect]
     Dosage: 10 MILLIONU/M2 ON DAY THREE FOR THREE DAYS ON WEEK 1 + 4 AND 5MILLIONU/M2 THRICE WEEKLY ON WEEK+
     Route: 058
     Dates: start: 20041020, end: 20041112
  4. PROLEUKIN [Suspect]
     Dosage: 10 MILLIONU/M2 ON DAY THREE FOR THREE DAYS ON WEEK 1 + 4 AND 5MILLIONU/M2 THRICE WEEKLY ON WEEK+
     Route: 058
     Dates: start: 20041117, end: 20050103
  5. FLUOROURACIL [Suspect]
     Dosage: CUMULATIVE DOSE WAS 3000.000 UNIT.
     Route: 042
     Dates: start: 20041117, end: 20041206
  6. PARACETAMOL [Concomitant]
     Dosage: PRN.
  7. LEVOTHYROXINE SODIUM [Concomitant]
  8. ACENOCOUMAROL [Concomitant]
     Dates: start: 20041215

REACTIONS (10)
  - ANGINA PECTORIS [None]
  - CARDIOVASCULAR DISORDER [None]
  - DEHYDRATION [None]
  - DIARRHOEA [None]
  - DRUG TOXICITY [None]
  - EATING DISORDER [None]
  - HAEMATEMESIS [None]
  - MYOCARDIAL ISCHAEMIA [None]
  - NAUSEA [None]
  - VENA CAVA THROMBOSIS [None]
